FAERS Safety Report 19251179 (Version 1)
Quarter: 2021Q2

REPORT INFORMATION
  Report Type: Report from Study
  Country: IT (occurrence: IT)
  Receive Date: 20210513
  Receipt Date: 20210513
  Transmission Date: 20210717
  Serious: Yes (Hospitalization)
  Sender: FDA-Public Use
  Company Number: IT-JNJFOC-20210509688

PATIENT
  Age: 77 Year
  Sex: Male

DRUGS (7)
  1. SALAZOPYRIN EN [Concomitant]
     Active Substance: SULFASALAZINE
  2. VALPRESSION [Concomitant]
     Active Substance: VALSARTAN
  3. SPIRIVA [Concomitant]
     Active Substance: TIOTROPIUM BROMIDE MONOHYDRATE
  4. TERAPROST [Concomitant]
     Active Substance: TERAZOSIN HYDROCHLORIDE
  5. LASIX [Concomitant]
     Active Substance: FUROSEMIDE
  6. RIVAROXABAN [Suspect]
     Active Substance: RIVAROXABAN
     Indication: ATRIAL FIBRILLATION
     Dosage: UNK
     Route: 048
     Dates: start: 20210101, end: 20210408
  7. CARDICOR [Concomitant]
     Active Substance: BISOPROLOL

REACTIONS (2)
  - Anaemia [Not Recovered/Not Resolved]
  - Haemoglobin decreased [Not Recovered/Not Resolved]

NARRATIVE: CASE EVENT DATE: 20210408
